FAERS Safety Report 6457930-9 (Version None)
Quarter: 2009Q4

REPORT INFORMATION
  Report Type: 
  Country: None (occurrence: None)
  Receive Date: 20091125
  Receipt Date: 20091117
  Transmission Date: 20100525
  Serious: Yes (Other)
  Sender: FDA-Public Use
  Company Number: US-AMGEN-US375137

PATIENT
  Age: 48 Year
  Sex: Female

DRUGS (2)
  1. NEULASTA [Suspect]
     Indication: CHEMOTHERAPY
     Route: 065
  2. IXABEPILONE [Suspect]
     Route: 042
     Dates: start: 20090414, end: 20090531

REACTIONS (1)
  - LYMPHOPENIA [None]
